FAERS Safety Report 7324745-9 (Version None)
Quarter: 2011Q1

REPORT INFORMATION
  Report Type: 
  Country: None (occurrence: None)
  Receive Date: 20110301
  Receipt Date: 20110216
  Transmission Date: 20110831
  Serious: Yes (Hospitalization, Other)
  Sender: FDA-Public Use
  Company Number: JP-ELI_LILLY_AND_COMPANY-JP201102005340

PATIENT
  Age: 72 Year
  Sex: Female
  Weight: 46.1 kg

DRUGS (9)
  1. PANTOSIN [Concomitant]
     Indication: CONSTIPATION
     Dosage: 100 MG, 3/D
     Route: 048
  2. WARFARIN POTASSIUM [Concomitant]
     Indication: PULMONARY ARTERIAL HYPERTENSION
     Dosage: 0.75 MG, DAILY (1/D)
     Route: 048
  3. TAKEPRON [Concomitant]
     Indication: GASTRITIS PROPHYLAXIS
     Dosage: 16 MG, DAILY (1/D)
     Route: 048
  4. GLYSENNID [Concomitant]
     Indication: CONSTIPATION
     Dosage: 12 MG, 3/D
     Route: 048
  5. MAGNESIUM OXIDE [Concomitant]
     Indication: CONSTIPATION
     Dosage: 500 MG, 3/D
     Route: 048
  6. FUROSEMIDE [Concomitant]
     Indication: PULMONARY ARTERIAL HYPERTENSION
     Dosage: 20 MG, DAILY (1/D)
     Route: 048
  7. BERAPROST SODIUM [Concomitant]
     Indication: PULMONARY ARTERIAL HYPERTENSION
     Dosage: 60 UG, 2/D
     Route: 048
     Dates: end: 20101222
  8. SITAXENTAN [Concomitant]
     Indication: PULMONARY ARTERIAL HYPERTENSION
     Dosage: 100 MG, DAILY (1/D)
     Route: 048
     Dates: start: 20101126, end: 20101209
  9. ADCIRCA [Suspect]
     Indication: PULMONARY ARTERIAL HYPERTENSION
     Dosage: 20 MG, DAILY (1/D)
     Route: 048
     Dates: start: 20101214, end: 20101222

REACTIONS (2)
  - CARDIAC FAILURE [None]
  - CEREBRAL CIRCULATORY FAILURE [None]
